FAERS Safety Report 5470388-1 (Version None)
Quarter: 2007Q3

REPORT INFORMATION
  Report Type: 
  Country: None (occurrence: None)
  Receive Date: 20070820
  Receipt Date: 20070628
  Transmission Date: 20080115
  Serious: No
  Sender: FDA-Public Use
  Company Number: WAES 0706USA05280

PATIENT
  Age: 74 Year
  Sex: Female

DRUGS (2)
  1. JANUVIA [Suspect]
     Indication: DIABETES MELLITUS
     Dosage: 100 MG/DAILY/PO
     Route: 048
     Dates: start: 20070530, end: 20070617
  2. THERAPY UNSPECIFIED [Concomitant]

REACTIONS (3)
  - OEDEMA MOUTH [None]
  - SWOLLEN TONGUE [None]
  - TONGUE ULCERATION [None]
